FAERS Safety Report 15488346 (Version 3)
Quarter: 2022Q2

REPORT INFORMATION
  Report Type: Spontaneous
  Country: JP (occurrence: None)
  Receive Date: 20181011
  Receipt Date: 20220630
  Transmission Date: 20220721
  Serious: Yes (Death, Hospitalization)
  Sender: FDA-Public Use
  Company Number: JP-EISAI MEDICAL RESEARCH-EC-2018-046189

PATIENT
  Age: 70 Year
  Sex: Male

DRUGS (1)
  1. LENVIMA [Suspect]
     Active Substance: LENVATINIB
     Indication: Hepatocellular carcinoma
     Route: 048
     Dates: start: 20180820, end: 20180919

REACTIONS (5)
  - Duodenal ulcer haemorrhage [Fatal]
  - Diarrhoea [Unknown]
  - Decreased appetite [Recovered/Resolved]
  - Renal impairment [Unknown]
  - Anaemia [Unknown]

NARRATIVE: CASE EVENT DATE: 20180901
